FAERS Safety Report 9297611 (Version 1)
Quarter: 2013Q2

REPORT INFORMATION
  Report Type: Spontaneous
  Country: DE (occurrence: DE)
  Receive Date: 20130520
  Receipt Date: 20130520
  Transmission Date: 20140414
  Serious: Yes (Other)
  Sender: FDA-Public Use
  Company Number: PHHY2013DE049379

PATIENT
  Sex: 0

DRUGS (1)
  1. VOTUBIA [Suspect]
     Dosage: 5 MG, UNK

REACTIONS (1)
  - Calculus urinary [Unknown]
